FAERS Safety Report 19411026 (Version 2)
Quarter: 2021Q2

REPORT INFORMATION
  Report Type: Spontaneous
  Country: FR (occurrence: FR)
  Receive Date: 20210614
  Receipt Date: 20210629
  Transmission Date: 20210717
  Serious: Yes (Hospitalization)
  Sender: FDA-Public Use
  Company Number: FR-SA-2021SA196024

PATIENT
  Age: 50 Year
  Sex: Female
  Weight: 47 kg

DRUGS (5)
  1. XOLAIR [Concomitant]
     Active Substance: OMALIZUMAB
     Indication: ASTHMA
  2. METHOTREXATE. [Concomitant]
     Active Substance: METHOTREXATE
  3. NUCALA [Concomitant]
     Active Substance: MEPOLIZUMAB
     Indication: ASTHMA
  4. DUPIXENT [Suspect]
     Active Substance: DUPILUMAB
     Indication: ASTHMA
     Dosage: 600 MG, 1X
     Route: 058
  5. DUPIXENT [Suspect]
     Active Substance: DUPILUMAB
     Dosage: 300 MG
     Route: 058

REACTIONS (8)
  - Ear disorder [Unknown]
  - Eosinophilia [Recovering/Resolving]
  - Nasal obstruction [Recovering/Resolving]
  - Headache [Recovering/Resolving]
  - Conjunctivitis [Recovering/Resolving]
  - Nasal disorder [Unknown]
  - Cough [Recovering/Resolving]
  - Loss of personal independence in daily activities [Unknown]
